FAERS Safety Report 20034908 (Version 1)
Quarter: 2021Q4

REPORT INFORMATION
  Report Type: Spontaneous
  Country: DE (occurrence: DE)
  Receive Date: 20211104
  Receipt Date: 20211104
  Transmission Date: 20220303
  Serious: Yes (Hospitalization)
  Sender: FDA-Public Use
  Company Number: DE-ENDO PHARMACEUTICALS INC-2021-012799

PATIENT
  Age: 34 Year
  Sex: Male

DRUGS (1)
  1. AVEED [Suspect]
     Active Substance: TESTOSTERONE UNDECANOATE
     Indication: Hypogonadism
     Dosage: UNK UNKNOWN, UNKNOWN
     Route: 030

REACTIONS (4)
  - Eosinophilia [Recovered/Resolved]
  - Pleural effusion [Recovered/Resolved]
  - Lymphadenopathy [Recovered/Resolved]
  - Overdose [Unknown]
